FAERS Safety Report 9345891 (Version 4)
Quarter: 2013Q3

REPORT INFORMATION
  Report Type: Spontaneous
  Country: JP (occurrence: JP)
  Receive Date: 20130613
  Receipt Date: 20130826
  Transmission Date: 20140515
  Serious: Yes (Death)
  Sender: FDA-Public Use
  Company Number: JP-PFIZER INC-2013173381

PATIENT
  Age: 82 Year
  Sex: Female
  Weight: 35 kg

DRUGS (15)
  1. RHEUMATREX [Suspect]
     Indication: RHEUMATOID ARTHRITIS
     Dosage: 4 MG, WEEKLY
     Route: 048
     Dates: end: 20130408
  2. CELECOX [Suspect]
     Indication: RHEUMATOID ARTHRITIS
     Dosage: 100 MG, 2X/DAY
     Route: 048
     Dates: end: 20130413
  3. CELECOX [Suspect]
     Indication: COMPRESSION FRACTURE
  4. RIMATIL [Suspect]
     Indication: RHEUMATOID ARTHRITIS
     Dosage: 100 MG, 3X/DAY
     Route: 048
     Dates: end: 20130408
  5. PREDNISOLONE [Concomitant]
     Dosage: UNK
     Route: 048
  6. TAKEPRON [Concomitant]
     Dosage: UNK
     Route: 048
  7. AMLODIN [Concomitant]
     Dosage: UNK
     Route: 048
  8. LENDORMIN [Concomitant]
     Dosage: UNK
     Route: 048
  9. TOFRANIL [Concomitant]
     Dosage: UNK
     Route: 048
  10. PROMAC /JPN/ [Concomitant]
     Dosage: UNK
     Route: 048
  11. OPALMON [Concomitant]
     Dosage: UNK
     Route: 048
  12. MIYA BM [Concomitant]
     Dosage: UNK
     Route: 048
  13. FOSAMAC [Concomitant]
     Dosage: UNK
     Route: 048
  14. MYSLEE [Concomitant]
     Dosage: UNK
     Route: 048
  15. CALONAL [Concomitant]
     Dosage: UNK
     Route: 048

REACTIONS (1)
  - Pancytopenia [Fatal]
